FAERS Safety Report 4782403-9 (Version None)
Quarter: 2005Q3

REPORT INFORMATION
  Report Type: 
  Country: None (occurrence: None)
  Receive Date: 20050929
  Receipt Date: 20050920
  Transmission Date: 20060218
  Serious: Yes (Hospitalization)
  Sender: FDA-Public Use
  Company Number: FR-JNJFOC-20050406935

PATIENT
  Age: 61 Year
  Sex: Female

DRUGS (7)
  1. REMICADE [Suspect]
     Dosage: 24TH INFUSION
     Route: 042
  2. REMICADE [Suspect]
     Indication: RHEUMATOID ARTHRITIS
     Route: 042
  3. METHOTREXATE [Concomitant]
     Route: 048
  4. OMEPRAZOLE [Concomitant]
     Route: 048
  5. SPECIAFOLDINE [Concomitant]
     Route: 048
  6. BIPROFENID [Concomitant]
     Route: 048
  7. CORTANCYL [Concomitant]
     Route: 048

REACTIONS (6)
  - ABSCESS INTESTINAL [None]
  - BACTERIAL INFECTION [None]
  - BACTERIAL SEPSIS [None]
  - PELVIC ABSCESS [None]
  - SEPSIS [None]
  - SIGMOIDITIS [None]
